FAERS Safety Report 17711126 (Version 5)
Quarter: 2024Q3

REPORT INFORMATION
  Report Type: Report from Study
  Country: DE (occurrence: DE)
  Receive Date: 20200427
  Receipt Date: 20240731
  Transmission Date: 20241017
  Serious: No
  Sender: ROCHE
  Company Number: DE-ROCHE-2576081

PATIENT
  Age: 62 Year
  Sex: Female
  Weight: 68.0 kg

DRUGS (17)
  1. OCREVUS [Suspect]
     Active Substance: OCRELIZUMAB
     Indication: Relapsing multiple sclerosis
     Route: 042
     Dates: start: 20181212
  2. OCREVUS [Suspect]
     Active Substance: OCRELIZUMAB
     Route: 042
     Dates: start: 20180606, end: 20180620
  3. VESIKUR [Concomitant]
     Active Substance: SOLIFENACIN SUCCINATE
     Indication: Bladder discomfort
     Dosage: BLADDER DISCOMFORT, EXACT START DATE UNKNOWN AS EXTERNALLY PRESCRIBED BY UROLOGISTS
     Route: 048
     Dates: start: 2017
  4. RANITIDINE [Concomitant]
     Active Substance: RANITIDINE
     Indication: Prophylaxis
     Dosage: PROPHYLAXIS OF ADVERSE REACTIONS DURING OCREVUS ADMINISITRATION
     Route: 048
     Dates: start: 20181211, end: 20181213
  5. RANITIDINE [Concomitant]
     Active Substance: RANITIDINE
     Route: 048
     Dates: start: 20180605, end: 20180607
  6. EBASTINE [Concomitant]
     Active Substance: EBASTINE
     Indication: Prophylaxis
     Dosage: PROPHYLAXIS OF ADVERSE REACTIONS DURING OCREVUS ADMINISITRATION
     Route: 048
     Dates: start: 20180605, end: 20180607
  7. EBASTINE [Concomitant]
     Active Substance: EBASTINE
     Route: 048
     Dates: start: 20181211, end: 20181213
  8. NABIXIMOLS [Concomitant]
     Active Substance: NABIXIMOLS
     Indication: Muscle spasticity
     Dosage: SPASTICITY; DOSE AND INTERVAL UNKNOWN
     Dates: start: 20141030
  9. RAMIPRIL [Concomitant]
     Active Substance: RAMIPRIL
     Indication: Hypertension
     Route: 048
     Dates: start: 201907, end: 201908
  10. PREDNISOLONE [Concomitant]
     Active Substance: PREDNISOLONE
     Indication: Prophylaxis
     Dosage: PROPHYLAXIS OF ADVERSE REACTIONS DURING OCREVUS ADMINISITRATION
     Route: 042
     Dates: start: 20180620, end: 20180620
  11. PREDNISOLONE [Concomitant]
     Active Substance: PREDNISOLONE
     Route: 042
     Dates: start: 20181212, end: 20181212
  12. DALFAMPRIDINE [Concomitant]
     Active Substance: DALFAMPRIDINE
     Dosage: IMPROVEMENT OF WALKING DISTANCE
     Route: 048
     Dates: start: 20171130
  13. PREDNISOLONE [Concomitant]
     Active Substance: PREDNISOLONE
     Indication: Prophylaxis
     Dosage: PROPHYLAXIS OF ADVERSE REACTIONS DURING OCREVUS ADMINISITRATION
     Route: 042
     Dates: start: 20180606, end: 20180606
  14. PROLIA [Concomitant]
     Active Substance: DENOSUMAB
     Indication: Osteoporosis
     Route: 058
     Dates: start: 20130123
  15. DIMETHINDENE [Concomitant]
     Active Substance: DIMETHINDENE
     Indication: Prophylaxis
     Dosage: PROPHYLAXIS OF ADVERSE REACTIONS DURING OCREVUS ADMINISITRATION (PATIENT FORGOT TO TAKE RANITIDINE A
     Route: 042
     Dates: start: 20180620, end: 20180620
  16. TIZANIDINE [Concomitant]
     Active Substance: TIZANIDINE
     Indication: Muscle spasticity
     Route: 048
     Dates: start: 20141030, end: 201912
  17. CHOLECALCIFEROL [Concomitant]
     Active Substance: CHOLECALCIFEROL
     Indication: Vitamin D deficiency
     Route: 048
     Dates: start: 20121212

REACTIONS (1)
  - Herpes zoster [Recovered/Resolved]

NARRATIVE: CASE EVENT DATE: 20190401
